FAERS Safety Report 9801984 (Version 1)
Quarter: 2014Q1

REPORT INFORMATION
  Report Type: Spontaneous
  Country: JP (occurrence: JP)
  Receive Date: 20140107
  Receipt Date: 20140107
  Transmission Date: 20141002
  Serious: Yes (Life-Threatening, Hospitalization)
  Sender: FDA-Public Use
  Company Number: PHHY2014JP000826

PATIENT
  Age: 11 Year
  Sex: Male
  Weight: 29 kg

DRUGS (2)
  1. ATOMOXETINE [Suspect]
     Indication: ATTENTION DEFICIT/HYPERACTIVITY DISORDER
     Dosage: 0.7 MG/KG, PER DAY
  2. ATOMOXETINE [Suspect]
     Dosage: 1.2 MG/KG, PER DAY

REACTIONS (18)
  - Long QT syndrome [Recovered/Resolved]
  - Hypotonia [Recovered/Resolved]
  - Eye movement disorder [Recovered/Resolved]
  - Cardiomegaly [Recovered/Resolved]
  - Stress cardiomyopathy [Recovered/Resolved]
  - Ventricular extrasystoles [Recovered/Resolved]
  - Mitral valve incompetence [Recovered/Resolved]
  - Sinus bradycardia [Recovered/Resolved]
  - Malaise [Recovered/Resolved]
  - Electrocardiogram T wave inversion [Recovered/Resolved]
  - Urinary incontinence [Recovered/Resolved]
  - Confusional state [Recovered/Resolved]
  - Loss of consciousness [Recovered/Resolved]
  - Unresponsive to stimuli [Recovered/Resolved]
  - Blood pressure decreased [Recovered/Resolved]
  - Somnolence [Recovered/Resolved]
  - Nausea [Recovered/Resolved]
  - Vomiting [Recovered/Resolved]
